FAERS Safety Report 12101089 (Version 1)
Quarter: 2016Q1

REPORT INFORMATION
  Report Type: Spontaneous
  Country: CA (occurrence: CA)
  Receive Date: 20160222
  Receipt Date: 20160222
  Transmission Date: 20160526
  Serious: Yes (Life-Threatening, Other)
  Sender: FDA-Public Use
  Company Number: CA-MEDTRONIC-1048195

PATIENT
  Age: 64 Year
  Sex: Female

DRUGS (22)
  1. WARFARIN SODIUM. [Suspect]
     Active Substance: WARFARIN SODIUM
  2. LORATADINE. [Suspect]
     Active Substance: LORATADINE
  3. ANTITHYMOCYTE IMMUNOGLOBULIN [Suspect]
     Active Substance: THYMOCYTE IMMUNE GLOBULIN NOS
     Route: 042
  4. CALCIUM CARBONATE. [Suspect]
     Active Substance: CALCIUM CARBONATE
  5. ALENDRONATE SODIUM. [Suspect]
     Active Substance: ALENDRONATE SODIUM
  6. ACIDOPHILUS [Suspect]
     Active Substance: LACTOBACILLUS ACIDOPHILUS
  7. HYDROMORPHONE HCL [Suspect]
     Active Substance: HYDROMORPHONE HYDROCHLORIDE
  8. ATIVAN [Suspect]
     Active Substance: LORAZEPAM
  9. LYRICA [Suspect]
     Active Substance: PREGABALIN
  10. CELLCEPT [Suspect]
     Active Substance: MYCOPHENOLATE MOFETIL\MYCOPHENOLATE MOFETIL HYDROCHLORIDE
  11. BACLOFEN. [Suspect]
     Active Substance: BACLOFEN
  12. ZANTAC [Suspect]
     Active Substance: RANITIDINE HYDROCHLORIDE
  13. CYANOCOBALAMIN. [Suspect]
     Active Substance: CYANOCOBALAMIN
  14. DOCUSATE SODIUM. [Suspect]
     Active Substance: DOCUSATE SODIUM
  15. MELATONIN [Suspect]
     Active Substance: MELATONIN
  16. NICOTINAMIDE /PYRIDOXINE [Concomitant]
  17. FUROSEMIDE. [Suspect]
     Active Substance: FUROSEMIDE
  18. PREDNISONE. [Suspect]
     Active Substance: PREDNISONE
  19. NASONEX [Suspect]
     Active Substance: MOMETASONE FUROATE
  20. SULFAMETHOXAZOLE AND TRIMETHOPRIM [Suspect]
     Active Substance: SULFAMETHOXAZOLE\TRIMETHOPRIM
  21. ZOPICLONE [Suspect]
     Active Substance: ZOPICLONE
  22. CYMBALTA [Suspect]
     Active Substance: DULOXETINE HYDROCHLORIDE
     Route: 048

REACTIONS (4)
  - Pneumonia aspiration [Recovered/Resolved with Sequelae]
  - Somnolence [Recovered/Resolved with Sequelae]
  - Gastrooesophageal reflux disease [Recovered/Resolved with Sequelae]
  - Coma [Recovered/Resolved with Sequelae]
